FAERS Safety Report 17207549 (Version 1)
Quarter: 2019Q4

REPORT INFORMATION
  Report Type: Spontaneous
  Country: US (occurrence: US)
  Receive Date: 20191205
  Receipt Date: 20191205
  Transmission Date: 20200122
  Serious: No
  Sender: FDA-Public Use
  Company Number: None

PATIENT
  Age: 5 Year
  Sex: Female
  Weight: 16.8 kg

DRUGS (7)
  1. GAMMAGARD LIQUID [Suspect]
     Active Substance: HUMAN IMMUNOGLOBULIN G
     Indication: KAWASAKI^S DISEASE
     Dates: start: 20191128, end: 20191129
  2. AZITHROMYCIN ANHYDROUS. [Concomitant]
     Active Substance: AZITHROMYCIN ANHYDROUS
  3. LACTOBACILLUS PROBIOTIC [Concomitant]
  4. GAMMAGARD LIQUID [Suspect]
     Active Substance: HUMAN IMMUNOGLOBULIN G
     Indication: KAWASAKI^S DISEASE
     Dosage: ?          OTHER DOSE:2G/KG;?
     Route: 042
     Dates: start: 20191128, end: 20191129
  5. MAINTENANCE FLUIDS [Concomitant]
  6. CEFTIAXONE [Concomitant]
  7. ACETAMINOPEHN [Concomitant]
     Active Substance: ACETAMINOPHEN

REACTIONS (2)
  - Haemoglobin decreased [None]
  - Haemolysis [None]

NARRATIVE: CASE EVENT DATE: 20191129
